FAERS Safety Report 6234007-9 (Version None)
Quarter: 2009Q2

REPORT INFORMATION
  Report Type: 
  Country: None (occurrence: None)
  Receive Date: 20090616
  Receipt Date: 20090616
  Transmission Date: 20091009
  Serious: Yes (Hospitalization)
  Sender: FDA-Public Use
  Company Number: None

PATIENT
  Age: 21 Year
  Sex: Female
  Weight: 97.5234 kg

DRUGS (1)
  1. HALFLYTELY [Suspect]
     Indication: BOWEL PREPARATION
     Dosage: 10MG BISACODYL ONCE AT NOON PO 8-10 OZ EVERY 15 MIN PO
     Route: 048
     Dates: start: 20090614

REACTIONS (5)
  - DISCOMFORT [None]
  - NAUSEA [None]
  - PAIN [None]
  - RETCHING [None]
  - VOMITING [None]
